FAERS Safety Report 17861455 (Version 1)
Quarter: 2020Q2

REPORT INFORMATION
  Report Type: Report from Study
  Country: US (occurrence: US)
  Receive Date: 20200604
  Receipt Date: 20200604
  Transmission Date: 20200714
  Serious: No
  Sender: FDA-Public Use
  Company Number: NVSC2020US155968

PATIENT
  Sex: Female

DRUGS (2)
  1. COSENTYX [Suspect]
     Active Substance: SECUKINUMAB
     Indication: INFLAMMATION
  2. COSENTYX [Suspect]
     Active Substance: SECUKINUMAB
     Indication: ARTHRITIS
     Dosage: UNK
     Route: 065

REACTIONS (2)
  - Arthritis [Unknown]
  - Inflammation [Unknown]
